FAERS Safety Report 16668074 (Version 6)
Quarter: 2020Q2

REPORT INFORMATION
  Report Type: Report from Study
  Country: US (occurrence: US)
  Receive Date: 20190805
  Receipt Date: 20200501
  Transmission Date: 20200713
  Serious: Yes (Hospitalization, Other)
  Sender: FDA-Public Use
  Company Number: US-SA-2019SA207003

PATIENT
  Age: 27 Year
  Sex: Female

DRUGS (1)
  1. ALEMTUZUMAB [Suspect]
     Active Substance: ALEMTUZUMAB
     Indication: MULTIPLE SCLEROSIS
     Dosage: 12 MG, QD
     Route: 041
     Dates: start: 20190722, end: 20190726

REACTIONS (18)
  - Facial paralysis [Unknown]
  - Vascular pseudoaneurysm [Unknown]
  - Confusional state [Recovered/Resolved]
  - Haemorrhagic stroke [Unknown]
  - Hydrocephalus [Recovered/Resolved]
  - Basal ganglia haemorrhage [Unknown]
  - Somnolence [Unknown]
  - Lethargy [Recovered/Resolved]
  - Vomiting [Recovered/Resolved]
  - Multiple sclerosis relapse [Unknown]
  - Peroneal nerve palsy [Recovered/Resolved]
  - Reversible cerebral vasoconstriction syndrome [Unknown]
  - Vasculitis [Unknown]
  - Arterial rupture [Unknown]
  - Headache [Recovered/Resolved]
  - Muscle spasms [Recovered/Resolved]
  - Arterial spasm [Unknown]
  - Subarachnoid haemorrhage [Recovered/Resolved]

NARRATIVE: CASE EVENT DATE: 201907
